FAERS Safety Report 16275909 (Version 4)
Quarter: 2019Q3

REPORT INFORMATION
  Report Type: Spontaneous
  Country: US (occurrence: US)
  Receive Date: 20190506
  Receipt Date: 20190715
  Transmission Date: 20191004
  Serious: No
  Sender: FDA-Public Use
  Company Number: US-SA-2019SA118670

PATIENT
  Age: 57 Year
  Sex: Female

DRUGS (1)
  1. DUPIXENT [Suspect]
     Active Substance: DUPILUMAB
     Indication: DERMATITIS ATOPIC
     Dosage: 300 MG, QOW
     Route: 058
     Dates: start: 20190220

REACTIONS (4)
  - Injection site reaction [Unknown]
  - Nausea [Unknown]
  - Injection site bruising [Unknown]
  - Asthenia [Unknown]

NARRATIVE: CASE EVENT DATE: 2019
